FAERS Safety Report 4530287-6 (Version None)
Quarter: 2004Q4

REPORT INFORMATION
  Report Type: 
  Country: None (occurrence: None)
  Receive Date: 20041217
  Receipt Date: 20041202
  Transmission Date: 20050328
  Serious: Yes (Life-Threatening, Hospitalization, Disabling, Other)
  Sender: FDA-Public Use
  Company Number: US-MERCK-0412USA00442

PATIENT
  Age: 63 Year
  Sex: Female
  Weight: 110 kg

DRUGS (6)
  1. VIOXX [Suspect]
     Indication: RHEUMATOID ARTHRITIS
     Route: 048
     Dates: start: 20021001, end: 20040930
  2. TOPROL-XL [Concomitant]
     Route: 048
  3. MEDROL [Concomitant]
     Route: 048
  4. FOLIC ACID [Concomitant]
     Route: 048
  5. NEURONTIN [Concomitant]
     Route: 048
  6. NEXIUM [Concomitant]
     Route: 048

REACTIONS (6)
  - ANXIETY [None]
  - BLOOD GLUCOSE INCREASED [None]
  - CORONARY ARTERY OCCLUSION [None]
  - HAEMATOCRIT DECREASED [None]
  - HAEMOGLOBIN DECREASED [None]
  - PALPITATIONS [None]
